FAERS Safety Report 16599318 (Version 1)
Quarter: 2019Q3

REPORT INFORMATION
  Report Type: Spontaneous
  Country: FR (occurrence: FR)
  Receive Date: 20190719
  Receipt Date: 20190719
  Transmission Date: 20191004
  Serious: Yes (Hospitalization)
  Sender: FDA-Public Use
  Company Number: FR-009507513-1907FRA004703

PATIENT
  Age: 46 Year
  Sex: Female
  Weight: 62.4 kg

DRUGS (5)
  1. LEVOTHYROX [Concomitant]
     Active Substance: LEVOTHYROXINE
     Indication: HYPOTHYROIDISM
     Dosage: DOSE: 112.5 MICROGRAM, QD
     Route: 048
     Dates: start: 201701
  2. UN ALFA [Interacting]
     Active Substance: ALFACALCIDOL
     Indication: HYPOPARATHYROIDISM
     Dosage: 2 DOSAGE FORM, QD
     Route: 048
     Dates: start: 201701, end: 20190514
  3. MEDROGESTONE [Concomitant]
     Active Substance: MEDROGESTONE
     Dosage: 5 MILLIGRAM, QD
     Route: 048
  4. DIPROSTENE [Suspect]
     Active Substance: BETAMETHASONE DIPROPIONATE\BETAMETHASONE SODIUM PHOSPHATE
     Indication: TENDONITIS
     Dosage: 3 DOSAGE FORM; FORMULATION: SUSPENSION FOR INJECTION
     Route: 014
     Dates: start: 201903, end: 201903
  5. CACIT [CALCIUM CARBONATE] [Interacting]
     Active Substance: CALCIUM CARBONATE
     Indication: HYPOPARATHYROIDISM
     Dosage: 1 DOSAGE FORM, QD
     Route: 048
     Dates: start: 201701, end: 20190514

REACTIONS (2)
  - Acute kidney injury [Recovering/Resolving]
  - Hypercalcaemia [Recovered/Resolved]

NARRATIVE: CASE EVENT DATE: 201903
